FAERS Safety Report 6869613-1 (Version None)
Quarter: 2010Q3

REPORT INFORMATION
  Report Type: 
  Country: None (occurrence: None)
  Receive Date: 20100722
  Receipt Date: 20080812
  Transmission Date: 20110219
  Serious: No
  Sender: FDA-Public Use
  Company Number: US-PFIZER INC-2008066913

PATIENT
  Sex: Male
  Weight: 99.79 kg

DRUGS (1)
  1. CHANTIX [Suspect]

REACTIONS (2)
  - DRUG INEFFECTIVE [None]
  - WALKING AID USER [None]
